FAERS Safety Report 9994757 (Version 1)
Quarter: 2014Q1

REPORT INFORMATION
  Report Type: Spontaneous
  Country: US (occurrence: None)
  Receive Date: 20140306
  Receipt Date: 20140306
  Transmission Date: 20141002
  Serious: Yes (Hospitalization)
  Sender: FDA-Public Use
  Company Number: 2014EXPUS00041

PATIENT
  Age: 16 Year
  Sex: Female
  Weight: 80 kg

DRUGS (1)
  1. EXPAREL [Suspect]
     Indication: POSTOPERATIVE ANALGESIA
     Route: 058
     Dates: start: 20140222, end: 20140222

REACTIONS (3)
  - Overdose [None]
  - Incorrect dose administered [None]
  - Off label use [None]
